FAERS Safety Report 13380585 (Version 2)
Quarter: 2017Q2

REPORT INFORMATION
  Report Type: Other
  Country: BR (occurrence: BR)
  Receive Date: 20170329
  Receipt Date: 20170501
  Transmission Date: 20170830
  Serious: Yes (Other)
  Sender: FDA-Public Use
  Company Number: BR-SHIRE-BR201706821

PATIENT
  Sex: Male
  Weight: 24 kg

DRUGS (2)
  1. ELAPRASE [Suspect]
     Active Substance: IDURSULFASE
     Indication: MUCOPOLYSACCHARIDOSIS II
     Dosage: 12 MG (2 VIALS WEEKLY), 1X/WEEK
     Route: 042
     Dates: start: 20131118
  2. ENZYME [Concomitant]
     Indication: ENZYME SUPPLEMENTATION
     Dosage: UNK DOSE AND UNITS, OTHER (WEEKLY REGIME)
     Route: 065
     Dates: start: 20131118

REACTIONS (7)
  - Pre-existing condition improved [Unknown]
  - Agitation [Recovering/Resolving]
  - Speech disorder developmental [Unknown]
  - Disturbance in attention [Unknown]
  - Drug dose omission [Unknown]
  - Psychomotor hyperactivity [Unknown]
  - Incorrect dose administered [Unknown]
